FAERS Safety Report 9186892 (Version 2)
Quarter: 2013Q3

REPORT INFORMATION
  Report Type: Spontaneous
  Country: US (occurrence: US)
  Receive Date: 20130325
  Receipt Date: 20130722
  Transmission Date: 20140515
  Serious: Yes (Hospitalization)
  Sender: FDA-Public Use
  Company Number: US-GLAXOSMITHKLINE-A0999506A

PATIENT
  Age: 84 Year
  Sex: Female

DRUGS (1)
  1. ADVAIR [Suspect]
     Indication: PRODUCT USED FOR UNKNOWN INDICATION
     Route: 055
     Dates: start: 20090605

REACTIONS (4)
  - Hip fracture [Unknown]
  - Hip arthroplasty [Unknown]
  - Rehabilitation therapy [Unknown]
  - Fall [Unknown]
